FAERS Safety Report 8385848-3 (Version None)
Quarter: 2012Q2

REPORT INFORMATION
  Report Type: 
  Country: None (occurrence: None)
  Receive Date: 20120523
  Receipt Date: 20120509
  Transmission Date: 20120825
  Serious: Yes (Other)
  Sender: FDA-Public Use
  Company Number: 2011P1007905

PATIENT
  Sex: Female
  Weight: 87.9978 kg

DRUGS (31)
  1. ASPIRIN [Concomitant]
  2. MULTI-VITAMIN [Concomitant]
  3. ALPHA-LIPOIC ACID [Concomitant]
  4. FENTANYL [Suspect]
     Indication: ARTHRITIS
  5. FENTANYL [Suspect]
     Indication: FIBROMYALGIA
  6. FENTANYL [Suspect]
     Indication: COMPLEX REGIONAL PAIN SYNDROME
  7. FOLIC ACID [Concomitant]
  8. LASIX [Concomitant]
  9. HUMULIN N [Concomitant]
  10. LIDOCAINE [Concomitant]
  11. FLAX SEED OIL [Concomitant]
  12. GLUTATHIONE [Concomitant]
  13. FENTANYL-50 [Suspect]
     Indication: FIBROMYALGIA
     Dosage: 1 PATCH; Q3D; TDER
     Route: 062
     Dates: start: 20110101, end: 20110301
  14. FENTANYL-50 [Suspect]
     Indication: ARTHRITIS
     Dosage: 1 PATCH; Q3D; TDER
     Route: 062
     Dates: start: 20110101, end: 20110301
  15. FENTANYL-50 [Suspect]
     Indication: COMPLEX REGIONAL PAIN SYNDROME
     Dosage: 1 PATCH; Q3D; TDER
     Route: 062
     Dates: start: 20110101, end: 20110301
  16. VITAMIN D [Concomitant]
  17. FLONASE NASAL SRAY [Concomitant]
  18. VITAMIN E [Concomitant]
  19. POTASSIUM CHLORIDE [Concomitant]
  20. CELEXA [Concomitant]
  21. PERCOCET [Concomitant]
  22. FENTANYL-100 [Suspect]
     Indication: ARTHRITIS
     Dosage: Q3D; TDER
     Route: 062
     Dates: start: 20110101
  23. FENTANYL-100 [Suspect]
     Indication: FIBROMYALGIA
     Dosage: Q3D; TDER
     Route: 062
     Dates: start: 20110101
  24. AMITRIPTYLINE HCL [Concomitant]
  25. VITAMIN B6 [Concomitant]
  26. OXYCONTIN [Concomitant]
  27. HUMALOG [Concomitant]
  28. NEURONTIN [Concomitant]
  29. TOPROL-XL [Concomitant]
  30. VITAMIN C [Concomitant]
  31. UNSPECIFIED SUPPLEMENT [Concomitant]

REACTIONS (8)
  - MIDDLE INSOMNIA [None]
  - PAIN OF SKIN [None]
  - COMPLEX REGIONAL PAIN SYNDROME [None]
  - OEDEMA [None]
  - BREAKTHROUGH PAIN [None]
  - FALL [None]
  - DRUG EFFECT DECREASED [None]
  - APPLICATION SITE INFLAMMATION [None]
